FAERS Safety Report 7274820-2 (Version None)
Quarter: 2011Q1

REPORT INFORMATION
  Report Type: 
  Country: None (occurrence: None)
  Receive Date: 20110202
  Receipt Date: 20110202
  Transmission Date: 20110831
  Serious: Yes (Disabling)
  Sender: FDA-Public Use
  Company Number: None

PATIENT
  Sex: Female
  Weight: 80.7403 kg

DRUGS (4)
  1. BENZONATATE [Concomitant]
  2. LEVAQUIN [Suspect]
     Indication: BRONCHITIS
     Dosage: 1 TABLET DAILY
     Dates: start: 20100407, end: 20100416
  3. LEVAQUIN [Suspect]
     Indication: PNEUMONIA
     Dosage: 1 TABLET DAILY
     Dates: start: 20100407, end: 20100416
  4. VENTOLIN HFA [Concomitant]

REACTIONS (2)
  - QUALITY OF LIFE DECREASED [None]
  - PAIN IN EXTREMITY [None]
